FAERS Safety Report 10045413 (Version 3)
Quarter: 2014Q4

REPORT INFORMATION
  Report Type: Report from Study
  Country: US (occurrence: US)
  Receive Date: 20140328
  Receipt Date: 20141012
  Transmission Date: 20150528
  Serious: Yes (Hospitalization)
  Sender: FDA-Public Use
  Company Number: US-BRISTOL-MYERS SQUIBB COMPANY-19946490

PATIENT
  Age: 70 Year
  Sex: Female
  Weight: 59.9 kg

DRUGS (36)
  1. ESTRADIOL. [Concomitant]
     Active Substance: ESTRADIOL
     Dates: start: 20120606
  2. OXYCODONE HCL + ACETAMINOPHEN [Concomitant]
     Active Substance: ACETAMINOPHEN\OXYCODONE HYDROCHLORIDE
     Dates: start: 20120615
  3. HYDROXYZINE [Concomitant]
     Active Substance: HYDROXYZINE\HYDROXYZINE HYDROCHLORIDE
     Dates: start: 20130927
  4. METOPROLOL [Concomitant]
     Active Substance: METOPROLOL
     Dosage: TABS
     Route: 048
     Dates: start: 20120606
  5. DULCOLAX [Concomitant]
     Active Substance: BISACODYL OR DOCUSATE SODIUM
  6. VERSED [Concomitant]
     Active Substance: MIDAZOLAM HYDROCHLORIDE
  7. FENTANYL. [Concomitant]
     Active Substance: FENTANYL
  8. VEMURAFENIB [Suspect]
     Active Substance: VEMURAFENIB
     Indication: MALIGNANT MELANOMA
     Dosage: CYCLE 1: 720 MG PO BID?CYCLE 2: 480MG BID
     Route: 048
     Dates: start: 20131017, end: 20131128
  9. SYNTHROID [Concomitant]
     Active Substance: LEVOTHYROXINE SODIUM
     Dates: start: 20120606
  10. MULTIVITAMIN [Concomitant]
     Active Substance: VITAMINS
     Dosage: 1DF:1TABLET,EVERY MORNING
     Dates: start: 20120606
  11. HEPARIN [Concomitant]
     Active Substance: HEPARIN SODIUM
     Dosage: 1DF:5000 UNITS PER ML.
     Route: 058
  12. MIRALAX [Concomitant]
     Active Substance: POLYETHYLENE GLYCOL 3350
  13. IPILIMUMAB [Suspect]
     Active Substance: IPILIMUMAB
     Indication: MALIGNANT MELANOMA
     Route: 042
     Dates: start: 20131205, end: 20131205
  14. FERROUS SULFATE [Concomitant]
     Active Substance: FERROUS SULFATE\FERROUS SULFATE, DRIED
     Dates: start: 20120606
  15. LISINOPRIL. [Concomitant]
     Active Substance: LISINOPRIL
     Dates: start: 20120606
  16. SODIUM BICARBONATE. [Concomitant]
     Active Substance: SODIUM BICARBONATE
  17. PEPCID [Concomitant]
     Active Substance: FAMOTIDINE
  18. VICODIN [Concomitant]
     Active Substance: ACETAMINOPHEN\HYDROCODONE BITARTRATE
     Dates: start: 20130927
  19. LEVOTHYROXINE [Concomitant]
     Active Substance: LEVOTHYROXINE
     Dosage: TABS. BEFORE BREAKFAST
     Route: 048
  20. SARNA [Concomitant]
     Active Substance: CAMPHOR (NATURAL)\MENTHOL\PRAMOXINE HYDROCHLORIDE
     Route: 061
  21. SENNA-S [Concomitant]
     Active Substance: DOCUSATE SODIUM\SENNOSIDES
     Dosage: 1DF:50MG-8.6MG TAB
     Route: 048
  22. POTASSIUM CHLORIDE. [Concomitant]
     Active Substance: POTASSIUM CHLORIDE
  23. CALTRATE [Concomitant]
     Active Substance: CALCIUM CARBONATE
     Dates: start: 20120606
  24. DIURIL [Concomitant]
     Active Substance: CHLOROTHIAZIDE
     Dosage: IV PUSH
     Route: 042
  25. INSULIN [Concomitant]
     Active Substance: INSULIN NOS
  26. PRILOSEC [Concomitant]
     Active Substance: OMEPRAZOLE MAGNESIUM
     Dates: start: 20131001
  27. OMEPRAZOLE. [Concomitant]
     Active Substance: OMEPRAZOLE
     Dosage: CAPS
     Route: 048
  28. MAGNESIUM CITRATE. [Concomitant]
     Active Substance: MAGNESIUM CITRATE
     Route: 048
  29. NACL 0.9% [Concomitant]
  30. ASPIRIN. [Concomitant]
     Active Substance: ASPIRIN
     Dates: start: 20120606
  31. FISH OIL [Concomitant]
     Active Substance: FISH OIL
     Dates: start: 20120606
  32. LASIX [Concomitant]
     Active Substance: FUROSEMIDE
     Dosage: 200MG/20ML,IV PUSH
     Route: 042
     Dates: start: 20120606
  33. ADVIL [Concomitant]
     Active Substance: IBUPROFEN
     Dates: start: 20120606
  34. AMITRIPTYLINE [Concomitant]
     Active Substance: AMITRIPTYLINE
     Dosage: TABS,AT BED TIME
     Route: 048
     Dates: start: 20130606
  35. CIPROFLOXACIN. [Concomitant]
     Active Substance: CIPROFLOXACIN
     Dosage: TABS
     Route: 048
  36. PREDNISONE. [Concomitant]
     Active Substance: PREDNISONE

REACTIONS (1)
  - Blood creatine increased [Recovered/Resolved]

NARRATIVE: CASE EVENT DATE: 20131220
